FAERS Safety Report 7117544-4 (Version None)
Quarter: 2010Q4

REPORT INFORMATION
  Report Type: 
  Country: None (occurrence: None)
  Receive Date: 20101122
  Receipt Date: 20101115
  Transmission Date: 20110411
  Serious: Yes (Hospitalization)
  Sender: FDA-Public Use
  Company Number: US-US-EMD SERONO, INC.-7022825

PATIENT
  Sex: Male
  Weight: 80 kg

DRUGS (2)
  1. REBIF [Suspect]
     Indication: RELAPSING-REMITTING MULTIPLE SCLEROSIS
     Route: 058
     Dates: start: 20100929
  2. FAMOTIDINE [Concomitant]
     Indication: PROPHYLAXIS

REACTIONS (3)
  - FALL [None]
  - JOINT DISLOCATION [None]
  - MULTIPLE SCLEROSIS RELAPSE [None]
